FAERS Safety Report 4733614-X (Version None)
Quarter: 2005Q3

REPORT INFORMATION
  Report Type: 
  Country: None (occurrence: None)
  Receive Date: 20050729
  Receipt Date: 20050720
  Transmission Date: 20060218
  Serious: Yes (Other)
  Sender: FDA-Public Use
  Company Number: 2005103825

PATIENT
  Age: 74 Year
  Sex: Male

DRUGS (6)
  1. HYDROCORTISONE [Suspect]
     Indication: ADRENAL INSUFFICIENCY
     Dosage: 10 MG ORAL
     Route: 048
  2. SULPERAZON (SULBACTAM, CEFOPERAZONE) [Suspect]
     Indication: INFECTION
     Dosage: 2 GRAM, INTRAVENOUS
     Route: 042
     Dates: start: 20050627, end: 20050703
  3. UNASYN [Suspect]
     Indication: ILL-DEFINED DISORDER
     Dosage: 4.5 GRAM, INTRAVENOUS
     Route: 042
     Dates: start: 20050704, end: 20050710
  4. SAXIZON (HYDROCORTISONE SODIUM SUCCINATE) [Concomitant]
  5. LEVOTHYROXINE SODIUM [Concomitant]
  6. MAGNESIUM OXIDE (MAGNESIUM OXIDE) [Concomitant]

REACTIONS (3)
  - ADRENAL INSUFFICIENCY [None]
  - GENERAL PHYSICAL HEALTH DETERIORATION [None]
  - INFLAMMATION [None]
